FAERS Safety Report 13137971 (Version 1)
Quarter: 2017Q1

REPORT INFORMATION
  Report Type: Spontaneous
  Country: US (occurrence: US)
  Receive Date: 20170123
  Receipt Date: 20170123
  Transmission Date: 20170428
  Serious: No
  Sender: FDA-Public Use
  Company Number: US-UNITED THERAPEUTICS-UNT-2016-009760

PATIENT
  Age: 47 Year
  Sex: Female
  Weight: 68.27 kg

DRUGS (2)
  1. ATIVAN [Suspect]
     Active Substance: LORAZEPAM
     Indication: PRODUCT USED FOR UNKNOWN INDICATION
     Route: 065
  2. REMODULIN [Suspect]
     Active Substance: TREPROSTINIL
     Indication: PULMONARY ARTERIAL HYPERTENSION
     Dosage: 0.086 ?G/KG, CONTINUING
     Route: 041
     Dates: start: 20140227

REACTIONS (5)
  - Nausea [Unknown]
  - Device issue [Recovered/Resolved]
  - Headache [Unknown]
  - Overdose [Unknown]
  - Flushing [Unknown]

NARRATIVE: CASE EVENT DATE: 201606
